FAERS Safety Report 10150330 (Version 3)
Quarter: 2014Q3

REPORT INFORMATION
  Report Type: Spontaneous
  Country: JP (occurrence: JP)
  Receive Date: 20140502
  Receipt Date: 20140806
  Transmission Date: 20150326
  Serious: Yes (Life-Threatening, Hospitalization, Other)
  Sender: FDA-Public Use
  Company Number: JP-BRISTOL-MYERS SQUIBB COMPANY-20674933

PATIENT
  Age: 76 Year
  Sex: Male
  Weight: 8.8 kg

DRUGS (12)
  1. ELIQUIS [Suspect]
     Active Substance: APIXABAN
     Indication: THROMBOSIS PROPHYLAXIS
     Dosage: INTERRUPTED 20APR2014
     Route: 048
     Dates: start: 20140417
  2. NEXIUM [Concomitant]
     Active Substance: ESOMEPRAZOLE MAGNESIUM
  3. BETANIS [Suspect]
     Active Substance: MIRABEGRON
     Route: 048
  4. FOIPAN [Suspect]
     Active Substance: CAMOSTAT MESYLATE
  5. BAYASPIRIN [Concomitant]
     Active Substance: ASPIRIN
     Indication: ANGINA PECTORIS
     Route: 048
     Dates: start: 20130404
  6. ARTIST [Concomitant]
     Active Substance: CARVEDILOL
     Indication: CARDIAC FAILURE
     Route: 048
     Dates: start: 20130424
  7. ELIQUIS [Suspect]
     Active Substance: APIXABAN
     Indication: CEREBROVASCULAR ACCIDENT PROPHYLAXIS
     Dosage: INTERRUPTED 20APR2014
     Route: 048
     Dates: start: 20140417
  8. COVERSYL [Concomitant]
     Active Substance: PERINDOPRIL
     Indication: CARDIAC FAILURE
     Route: 048
     Dates: start: 20130404
  9. PLETAAL [Concomitant]
     Active Substance: CILOSTAZOL
     Indication: ANGINA PECTORIS
     Route: 048
     Dates: start: 20130530
  10. ARTIST [Concomitant]
     Active Substance: CARVEDILOL
     Indication: TACHYCARDIA
     Route: 048
     Dates: start: 20130424
  11. URSO [Concomitant]
     Active Substance: URSODIOL
  12. EPLERENONE. [Concomitant]
     Active Substance: EPLERENONE
     Indication: CARDIAC FAILURE
     Route: 048
     Dates: start: 20130404

REACTIONS (3)
  - Renal failure acute [Recovered/Resolved]
  - Liver disorder [Recovered/Resolved]
  - Hyperkalaemia [Recovered/Resolved]

NARRATIVE: CASE EVENT DATE: 20140420
